FAERS Safety Report 10066085 (Version 1)
Quarter: 2014Q2

REPORT INFORMATION
  Report Type: Spontaneous
  Country: US (occurrence: US)
  Receive Date: 20140408
  Receipt Date: 20140408
  Transmission Date: 20141212
  Serious: No
  Sender: FDA-Public Use
  Company Number: US-ASTELLAS-2014US001878

PATIENT
  Sex: Female

DRUGS (2)
  1. MYRBETRIQ [Suspect]
     Indication: POLLAKIURIA
     Dosage: 25 MG, UNKNOWN/D
     Route: 048
     Dates: start: 20140119
  2. METOPROLOL [Concomitant]
     Indication: BLOOD PRESSURE
     Dosage: UNK
     Route: 065

REACTIONS (2)
  - Drug ineffective [Unknown]
  - Micturition urgency [Unknown]
